FAERS Safety Report 11228841 (Version 1)
Quarter: 2015Q2

REPORT INFORMATION
  Report Type: Spontaneous
  Country: US (occurrence: None)
  Receive Date: 20150629
  Receipt Date: 20150629
  Transmission Date: 20150821
  Serious: Yes (Hospitalization)
  Sender: FDA-Public Use
  Company Number: None

PATIENT
  Age: 38 Year
  Sex: Female
  Weight: 167.83 kg

DRUGS (1)
  1. NORTREL (28 DAY REGIMEN) [Suspect]
     Active Substance: ETHINYL ESTRADIOL\NORETHINDRONE
     Indication: MENORRHAGIA
     Route: 048
     Dates: start: 20150515, end: 20150620

REACTIONS (1)
  - Thrombosis [None]

NARRATIVE: CASE EVENT DATE: 20150622
